FAERS Safety Report 6573950-8 (Version None)
Quarter: 2010Q1

REPORT INFORMATION
  Report Type: 
  Country: None (occurrence: None)
  Receive Date: 20100204
  Receipt Date: 20100204
  Transmission Date: 20100710
  Serious: Yes (Hospitalization)
  Sender: FDA-Public Use
  Company Number: None

PATIENT
  Sex: Male
  Weight: 109.5 kg

DRUGS (2)
  1. AZACITIDINE [Suspect]
     Indication: ACUTE MYELOID LEUKAEMIA
     Dosage: 75 MG/M2 QD IV
     Route: 042
  2. REVLEMMID [Suspect]
     Dosage: 25 MG QD PO
     Route: 048

REACTIONS (1)
  - UNEVALUABLE EVENT [None]
